FAERS Safety Report 4953172-4 (Version None)
Quarter: 2006Q1

REPORT INFORMATION
  Report Type: 
  Country: None (occurrence: None)
  Receive Date: 20060324
  Receipt Date: 20051117
  Transmission Date: 20060701
  Serious: Yes (Death, Hospitalization, Disabling, Other)
  Sender: FDA-Public Use
  Company Number: US-MERCK-0511USA03257

PATIENT
  Age: 46 Year
  Sex: Female
  Weight: 57 kg

DRUGS (6)
  1. VIOXX [Suspect]
     Indication: ARTHRITIS
     Route: 048
     Dates: start: 20020101, end: 20020101
  2. PLAVIX [Concomitant]
     Route: 065
  3. COUMADIN [Concomitant]
     Route: 065
  4. PREVACID [Concomitant]
     Route: 065
  5. ASPIRIN [Concomitant]
     Route: 065
  6. WELLBUTRIN [Concomitant]
     Route: 065

REACTIONS (5)
  - CARDIAC VALVE DISEASE [None]
  - CEREBROVASCULAR ACCIDENT [None]
  - PERITONITIS [None]
  - RENAL FAILURE CHRONIC [None]
  - SEPSIS [None]
